FAERS Safety Report 16730451 (Version 1)
Quarter: 2019Q3

REPORT INFORMATION
  Report Type: Spontaneous
  Country: US (occurrence: US)
  Receive Date: 20190705
  Receipt Date: 20190705
  Transmission Date: 20191005
  Serious: No
  Sender: FDA-Public Use
  Company Number: None

PATIENT
  Age: 78 Year
  Sex: Female
  Weight: 81.19 kg

DRUGS (10)
  1. LOSARTAN AND HYDROCHLOROTHIAZIDE [Concomitant]
     Active Substance: HYDROCHLOROTHIAZIDE\LOSARTAN POTASSIUM
  2. SYNTHROID [Concomitant]
     Active Substance: LEVOTHYROXINE SODIUM
  3. CRANBERRIES  W/VITAMINS [Concomitant]
  4. MAGNESIUM [Concomitant]
     Active Substance: MAGNESIUM
  5. VITAMIN B12 [Concomitant]
     Active Substance: CYANOCOBALAMIN
  6. VITAMIN D [Concomitant]
     Active Substance: VITAMIN D NOS
  7. METFORMIN [Concomitant]
     Active Substance: METFORMIN HYDROCHLORIDE
  8. AMLODIPINE [Concomitant]
     Active Substance: AMLODIPINE BESYLATE
  9. POTASSIUM [Concomitant]
     Active Substance: POTASSIUM
  10. BAYER ALEVE [Suspect]
     Active Substance: NAPROXEN SODIUM
     Indication: VOMITING PROJECTILE
     Dosage: BY MOUTH 2 IN MARCH 2019?BY MOUTH 2 IN JUNE 2019
     Route: 048
     Dates: start: 201903, end: 20190626

REACTIONS (5)
  - Drug ineffective [None]
  - Product dispensing error [None]
  - Insomnia [None]
  - Fatigue [None]
  - Wrong product administered [None]

NARRATIVE: CASE EVENT DATE: 20190625
